FAERS Safety Report 5952601-7 (Version None)
Quarter: 2008Q4

REPORT INFORMATION
  Report Type: 
  Country: None (occurrence: None)
  Receive Date: 20081031
  Receipt Date: 20070925
  Transmission Date: 20090506
  Serious: Yes (Other)
  Sender: FDA-Public Use
  Company Number: US021328

PATIENT
  Age: 32 Year
  Sex: Female

DRUGS (8)
  1. PROVIGIL [Suspect]
     Indication: FATIGUE
     Dosage: ORAL
     Route: 048
     Dates: end: 20070301
  2. REBIF [Suspect]
     Indication: MULTIPLE SCLEROSIS
     Dosage: 44 UG THREE TIMES PER WEEK SUBCUTANEOUS
     Route: 058
     Dates: start: 20060314, end: 20070301
  3. SEROQUEL [Suspect]
     Indication: INSOMNIA
     Dates: end: 20070301
  4. RELPAX [Suspect]
     Indication: MIGRAINE
     Dates: end: 20070301
  5. VESICARE [Suspect]
     Indication: BLADDER DISORDER
     Dates: end: 20070301
  6. BACLOFEN [Suspect]
     Indication: MUSCLE SPASMS
     Dates: end: 20070301
  7. MINOCYCLINE HCL [Suspect]
     Indication: HIDRADENITIS
     Dates: end: 20070301
  8. CELEXA [Concomitant]
     Indication: DEPRESSION
     Dates: end: 20070301

REACTIONS (2)
  - ABORTION SPONTANEOUS [None]
  - DRUG EXPOSURE DURING PREGNANCY [None]
